FAERS Safety Report 4883098-6 (Version None)
Quarter: 2006Q1

REPORT INFORMATION
  Report Type: 
  Country: None (occurrence: None)
  Receive Date: 20060118
  Receipt Date: 20051107
  Transmission Date: 20060701
  Serious: Yes (Hospitalization, Other)
  Sender: FDA-Public Use
  Company Number: US-BRISTOL-MYERS SQUIBB COMPANY-13171145

PATIENT
  Age: 56 Year
  Sex: Male

DRUGS (21)
  1. CETUXIMAB [Suspect]
     Indication: COLORECTAL CANCER METASTATIC
     Route: 042
     Dates: start: 20051031, end: 20051031
  2. IRINOTECAN HCL [Suspect]
     Indication: COLORECTAL CANCER METASTATIC
     Route: 042
     Dates: start: 20051031, end: 20051031
  3. ACTOS [Concomitant]
     Route: 048
     Dates: start: 20020101
  4. ALOXI [Concomitant]
     Route: 042
     Dates: start: 20051031, end: 20051031
  5. ATROPINE [Concomitant]
     Route: 042
     Dates: start: 20051031, end: 20051031
  6. BENADRYL [Concomitant]
     Route: 042
     Dates: start: 20051031, end: 20051031
  7. CEFAZOLIN [Concomitant]
     Route: 042
     Dates: start: 20051019, end: 20051218
  8. CIMETIDINE [Concomitant]
     Route: 042
     Dates: start: 20051031, end: 20051031
  9. COMPAZINE [Concomitant]
     Route: 048
     Dates: start: 20050719
  10. DECADRON [Concomitant]
     Route: 042
     Dates: start: 20051031, end: 20051031
  11. DILAUDID [Concomitant]
     Route: 048
     Dates: start: 20050729
  12. LASIX [Concomitant]
     Route: 048
     Dates: start: 20010701
  13. LIPITOR [Concomitant]
     Route: 048
     Dates: start: 20010701
  14. LORTAB [Concomitant]
     Dosage: 1-2 TABS DAILY.
     Route: 048
     Dates: start: 20050512
  15. LUNESTA [Concomitant]
     Route: 048
     Dates: start: 20050614
  16. METFORMIN HCL [Concomitant]
     Route: 048
     Dates: start: 20020101
  17. PREVACID [Concomitant]
     Route: 048
     Dates: start: 20010701
  18. PROMETHAZINE [Concomitant]
     Route: 048
     Dates: start: 20050919
  19. REGLAN [Concomitant]
     Route: 048
     Dates: start: 20051017
  20. STARLIX [Concomitant]
     Route: 048
     Dates: start: 20020101
  21. TAGAMET [Concomitant]
     Route: 042
     Dates: start: 20051031, end: 20051031

REACTIONS (4)
  - CHILLS [None]
  - NAUSEA [None]
  - PYREXIA [None]
  - VOMITING [None]
